FAERS Safety Report 20988301 (Version 1)
Quarter: 2022Q2

REPORT INFORMATION
  Report Type: Spontaneous
  Country: US (occurrence: None)
  Receive Date: 20220620
  Receipt Date: 20220620
  Transmission Date: 20220720
  Serious: Yes (unspecified)
  Sender: FDA-Public Use
  Company Number: None

PATIENT
  Age: 28 Year
  Sex: Male
  Weight: 150.57 kg

DRUGS (4)
  1. RISPERIDONE [Suspect]
     Active Substance: RISPERIDONE
     Indication: Hypersensitivity
     Dosage: FREQUENCY : TWICE A DAY;?
     Route: 048
     Dates: start: 20220615, end: 20220618
  2. HALDOL [Concomitant]
     Active Substance: HALOPERIDOL
     Dates: start: 20220608, end: 20220615
  3. Lisinopirl [Concomitant]
     Dates: start: 20220606
  4. Clonidine` [Concomitant]
     Dates: start: 20220606

REACTIONS (3)
  - Periorbital swelling [None]
  - Conjunctivitis allergic [None]
  - Urticaria [None]

NARRATIVE: CASE EVENT DATE: 20220618
